FAERS Safety Report 11523793 (Version 1)
Quarter: 2015Q3

REPORT INFORMATION
  Report Type: Spontaneous
  Country: US (occurrence: US)
  Receive Date: 20150918
  Receipt Date: 20150918
  Transmission Date: 20151125
  Serious: Yes (Death, Other)
  Sender: FDA-Public Use
  Company Number: US-TAKEDA-TPA2011A08467

PATIENT

DRUGS (15)
  1. ACTOS [Suspect]
     Active Substance: PIOGLITAZONE HYDROCHLORIDE
     Dosage: 75MG-45MG UNK
     Route: 048
     Dates: start: 20000713, end: 20091220
  2. ACTOS [Suspect]
     Active Substance: PIOGLITAZONE HYDROCHLORIDE
     Dosage: 45 MG, UNK
     Route: 048
     Dates: start: 20000730, end: 20091220
  3. LANTUS [Concomitant]
     Active Substance: INSULIN GLARGINE
     Dosage: 100-8 UNITS UNK
     Dates: start: 200607, end: 201203
  4. ACTOS [Suspect]
     Active Substance: PIOGLITAZONE HYDROCHLORIDE
     Indication: TYPE 2 DIABETES MELLITUS
     Dosage: 45 MG, UNK
     Route: 048
     Dates: start: 19990806, end: 200006
  5. GLUCOTROL [Concomitant]
     Active Substance: GLIPIZIDE
     Dosage: 10 MG, UNK
     Dates: start: 200201, end: 200606
  6. HUMALOG [Concomitant]
     Active Substance: INSULIN LISPRO
     Indication: TYPE 2 DIABETES MELLITUS
     Dosage: 100 ML, UNK
     Dates: start: 200704, end: 201112
  7. HUMALOG [Concomitant]
     Active Substance: INSULIN LISPRO
     Dosage: UNK
     Route: 065
     Dates: start: 2008, end: 201205
  8. ACTOS [Suspect]
     Active Substance: PIOGLITAZONE HYDROCHLORIDE
     Dosage: UNK
     Route: 048
     Dates: start: 200502, end: 200811
  9. GLUCOPHAGE [Concomitant]
     Active Substance: METFORMIN HYDROCHLORIDE
     Dosage: 500 MG, UNK
     Route: 065
     Dates: start: 199708, end: 200404
  10. GLUCOTROL [Concomitant]
     Active Substance: GLIPIZIDE
     Route: 065
     Dates: start: 200502, end: 200606
  11. GLUCOTROL [Concomitant]
     Active Substance: GLIPIZIDE
     Dosage: 5 MG, UNK
     Dates: start: 199601, end: 200201
  12. METFORMIN [Concomitant]
     Active Substance: METFORMIN HYDROCHLORIDE
     Dosage: 1000 MG, UNK
     Route: 065
     Dates: start: 200502, end: 200803
  13. METFORMIN [Concomitant]
     Active Substance: METFORMIN HYDROCHLORIDE
     Dosage: 1000 UNK
     Dates: start: 200211, end: 201112
  14. LANTUS [Concomitant]
     Active Substance: INSULIN GLARGINE
     Dosage: 100-8 UNITS
     Route: 065
     Dates: start: 200807, end: 201206
  15. BYETTA [Concomitant]
     Active Substance: EXENATIDE
     Dosage: 10MCG PEN/250MCG/ML
     Dates: start: 2006

REACTIONS (1)
  - Metastatic carcinoma of the bladder [Fatal]

NARRATIVE: CASE EVENT DATE: 201102
